FAERS Safety Report 8897676 (Version 1)
Quarter: 2012Q4

REPORT INFORMATION
  Report Type: 
  Country: US (occurrence: US)
  Receive Date: 20121108
  Receipt Date: 20121108
  Transmission Date: 20130627
  Serious: No
  Sender: FDA-Public Use
  Company Number: US-AMGEN-USASP2012028832

PATIENT
  Age: 46 Year
  Sex: Female
  Weight: 68.03 kg

DRUGS (6)
  1. ENBREL [Suspect]
     Indication: PRODUCT USED FOR UNKNOWN INDICATION
     Dosage: 50 mg, qwk
     Route: 058
  2. MOTRIN [Concomitant]
     Dosage: 400 mg, UNK
  3. METHOTREXATE [Concomitant]
     Dosage: 2.5 mg, UNK
  4. SYNTHROID [Concomitant]
     Dosage: 175 mug, UNK
  5. CYCLOBENZAPRINE [Concomitant]
     Dosage: 5 mg, UNK
  6. FOLIC ACID [Concomitant]

REACTIONS (3)
  - Dysphonia [Unknown]
  - Fatigue [Unknown]
  - Respiratory tract congestion [Recovering/Resolving]
